FAERS Safety Report 4609872-9 (Version None)
Quarter: 2005Q1

REPORT INFORMATION
  Report Type: 
  Country: None (occurrence: None)
  Receive Date: 20050314
  Receipt Date: 20050302
  Transmission Date: 20050727
  Serious: Yes (Hospitalization)
  Sender: FDA-Public Use
  Company Number: 2005-126032-NL

PATIENT
  Age: 22 Year
  Sex: Male

DRUGS (5)
  1. MIRTAZAPINE [Suspect]
     Indication: SCHIZOPHRENIA, PARANOID TYPE
     Dosage: DF
     Dates: start: 20000930, end: 20001013
  2. RISPERIDONE [Suspect]
     Dosage: MG;
     Dates: start: 20000918, end: 20001108
  3. CHLORPROTHIXENE HYDROCHLORIDE [Suspect]
     Dosage: MG;
     Dates: start: 20000922
  4. BIPERIDEN HYDROCHLORIDE TAB [Concomitant]
  5. MAGNESIUM VERLA DRAGEES [Concomitant]

REACTIONS (6)
  - ACTIVATED PROTEIN C RESISTANCE [None]
  - ARRHYTHMIA [None]
  - DEEP VEIN THROMBOSIS [None]
  - ERYTHEMA [None]
  - HYPERTHERMIA [None]
  - SWELLING [None]
